FAERS Safety Report 6833584-4 (Version None)
Quarter: 2010Q3

REPORT INFORMATION
  Report Type: 
  Country: None (occurrence: None)
  Receive Date: 20100712
  Receipt Date: 20100629
  Transmission Date: 20110219
  Serious: Yes (Other)
  Sender: FDA-Public Use
  Company Number: US-ELI_LILLY_AND_COMPANY-US200911003534

PATIENT
  Sex: Female

DRUGS (6)
  1. CYMBALTA [Suspect]
     Indication: ANXIETY
     Dosage: 60 MG, DAILY (1/D)
     Route: 048
     Dates: start: 20050101, end: 20050101
  2. CYMBALTA [Suspect]
     Dosage: 30 MG, OTHER
     Route: 048
     Dates: start: 20050101
  3. CYMBALTA [Suspect]
     Dosage: 30 MG, OTHER
     Route: 048
     Dates: start: 20091001
  4. CYMBALTA [Suspect]
     Dosage: 20 MG, DAILY (1/D)
  5. CYMBALTA [Suspect]
     Dosage: 1 D/F, UNK
  6. ABILIFY [Concomitant]
     Indication: ADJUSTMENT DISORDER
     Dosage: 2 MG, UNK

REACTIONS (14)
  - CONFUSIONAL STATE [None]
  - DRUG INEFFECTIVE [None]
  - DRUG WITHDRAWAL SYNDROME [None]
  - EMOTIONAL DISTRESS [None]
  - FATIGUE [None]
  - HEADACHE [None]
  - INTENTIONAL DRUG MISUSE [None]
  - MENTAL IMPAIRMENT [None]
  - MUSCLE SPASMS [None]
  - NAUSEA [None]
  - NEURALGIA [None]
  - NEUROPATHY PERIPHERAL [None]
  - UNEVALUABLE EVENT [None]
  - VOMITING [None]
